FAERS Safety Report 22399741 (Version 1)
Quarter: 2023Q2

REPORT INFORMATION
  Report Type: Spontaneous
  Country: MW (occurrence: MW)
  Receive Date: 20230602
  Receipt Date: 20230602
  Transmission Date: 20230721
  Serious: Yes (Other)
  Sender: FDA-Public Use
  Company Number: MW-BAXTER-2023BAX022973

PATIENT
  Age: 54 Year

DRUGS (2)
  1. ISOFLURANE [Suspect]
     Active Substance: ISOFLURANE
     Indication: Anaesthesia procedure
     Dosage: AT AN UNSPECIFIED DOSE AND FREQUENCY WITH CONCENTRATION BETWEEN 1 AND 2
     Route: 065
  2. HYDROCHLOROTHIAZIDE [Suspect]
     Active Substance: HYDROCHLOROTHIAZIDE
     Indication: Hypertension
     Route: 065

REACTIONS (2)
  - Bradycardia [Unknown]
  - Chills [Unknown]
